FAERS Safety Report 4959120-5 (Version None)
Quarter: 2006Q1

REPORT INFORMATION
  Report Type: 
  Country: None (occurrence: None)
  Receive Date: 20060331
  Receipt Date: 20050906
  Transmission Date: 20060701
  Serious: Yes (Hospitalization, Other)
  Sender: FDA-Public Use
  Company Number: FRWYE956606SEP05

PATIENT
  Sex: Female

DRUGS (4)
  1. ENBREL [Suspect]
     Indication: RHEUMATOID ARTHRITIS
     Dosage: UNKNOWN
     Route: 058
     Dates: start: 20041027, end: 20050601
  2. METHOTREXATE [Concomitant]
  3. CORTANCYL [Concomitant]
  4. FOSAMAX [Concomitant]
     Dates: start: 20030526, end: 20050601

REACTIONS (2)
  - BREAST CANCER [None]
  - BREAST CANCER FEMALE [None]
